FAERS Safety Report 12784321 (Version 1)
Quarter: 2016Q3

REPORT INFORMATION
  Report Type: Spontaneous
  Country: GB (occurrence: GB)
  Receive Date: 20160927
  Receipt Date: 20160927
  Transmission Date: 20161109
  Serious: Yes (Other)
  Sender: FDA-Public Use
  Company Number: GB-BEH-200712118

PATIENT
  Sex: Male

DRUGS (6)
  1. SANDOGLOBULIN [Suspect]
     Active Substance: HUMAN IMMUNOGLOBULIN G
     Route: 042
     Dates: start: 2003
  2. FLEBOGAMMA [Suspect]
     Active Substance: HUMAN IMMUNOGLOBULIN G
     Indication: NEUROPATHY PERIPHERAL
     Route: 042
  3. FLEBOGAMMA [Suspect]
     Active Substance: HUMAN IMMUNOGLOBULIN G
     Route: 042
  4. VIGAM [Suspect]
     Active Substance: HUMAN IMMUNOGLOBULIN G
     Indication: NEUROPATHY PERIPHERAL
     Route: 042
  5. VIGAM [Suspect]
     Active Substance: HUMAN IMMUNOGLOBULIN G
     Route: 042
  6. SANDOGLOBULIN [Suspect]
     Active Substance: HUMAN IMMUNOGLOBULIN G
     Indication: NEUROPATHY PERIPHERAL
     Route: 042
     Dates: start: 2003

REACTIONS (2)
  - Hepatitis B antibody positive [Recovered/Resolved]
  - Liver function test abnormal [Unknown]
